FAERS Safety Report 6370926-0 (Version None)
Quarter: 2009Q3

REPORT INFORMATION
  Report Type: 
  Country: None (occurrence: None)
  Receive Date: 20090923
  Receipt Date: 20070703
  Transmission Date: 20100115
  Serious: Yes (Other)
  Sender: FDA-Public Use
  Company Number: US-ASTRAZENECA-2006UW22744

PATIENT
  Age: 12843 Day
  Sex: Female
  Weight: 122.5 kg

DRUGS (16)
  1. SEROQUEL [Suspect]
     Indication: BIPOLAR DISORDER
     Dosage: 25-300 MG
     Route: 048
     Dates: start: 19980101, end: 20050101
  2. SEROQUEL [Suspect]
     Indication: DEPRESSION
     Dosage: 25-300 MG
     Route: 048
     Dates: start: 19980101, end: 20050101
  3. SEROQUEL [Suspect]
     Dosage: 300 MG 3 TABLETS AT NIGHT
     Route: 048
     Dates: start: 20030311
  4. SEROQUEL [Suspect]
     Dosage: 300 MG 3 TABLETS AT NIGHT
     Route: 048
     Dates: start: 20030311
  5. RISPERDAL [Concomitant]
  6. PREDNISONE [Concomitant]
     Dosage: 10 - 30 MG FLUCTUATING
     Route: 048
     Dates: start: 20030311
  7. AVANDAMET [Concomitant]
     Dosage: 2 / 500 TWICE DAILY - 2 / 1000 TWICE DAILY FLUCTUATING
     Route: 048
     Dates: start: 20050125
  8. EFFEXOR XR [Concomitant]
     Route: 048
     Dates: start: 20050209
  9. HYDROXYZINE [Concomitant]
     Route: 048
     Dates: start: 20050209
  10. CLONAZEPAM [Concomitant]
     Route: 048
     Dates: start: 20030311
  11. TRAZODONE [Concomitant]
     Dosage: 100 - 300 MG FLUCTUATING
     Route: 048
     Dates: start: 20030311
  12. PREVACID [Concomitant]
     Route: 048
     Dates: start: 20050119
  13. PROZAC [Concomitant]
     Dosage: 20 - 40 MG FLUCTUATING
     Route: 048
     Dates: start: 20030311
  14. RESTORIL [Concomitant]
     Route: 048
     Dates: start: 20030311
  15. PRILOSEC [Concomitant]
     Route: 048
     Dates: start: 20030522
  16. INSULIN [Concomitant]
     Dosage: 10 - 12 UNITS AT NIGHT FLUCTUATING, SUBCUTANEOUS
     Dates: start: 20050209

REACTIONS (5)
  - DIABETES MELLITUS [None]
  - DIABETES MELLITUS INADEQUATE CONTROL [None]
  - HYPERGLYCAEMIA [None]
  - INSULIN-REQUIRING TYPE 2 DIABETES MELLITUS [None]
  - TYPE 2 DIABETES MELLITUS [None]
